FAERS Safety Report 5834412-6 (Version None)
Quarter: 2008Q3

REPORT INFORMATION
  Report Type: 
  Country: None (occurrence: None)
  Receive Date: 20080722
  Receipt Date: 20080214
  Transmission Date: 20090109
  Serious: Yes (Hospitalization)
  Sender: FDA-Public Use
  Company Number: 2008BI003861

PATIENT
  Age: 34 Year
  Sex: Female
  Weight: 81.6475 kg

DRUGS (1)
  1. AVONEX [Suspect]
     Indication: MULTIPLE SCLEROSIS
     Dosage: 30 UG ; QW ; IM
     Route: 030
     Dates: start: 20080111

REACTIONS (3)
  - INFECTION [None]
  - INFLUENZA LIKE ILLNESS [None]
  - UHTHOFF'S PHENOMENON [None]
